FAERS Safety Report 8058103-9 (Version None)
Quarter: 2012Q1

REPORT INFORMATION
  Report Type: 
  Country: None (occurrence: None)
  Receive Date: 20120113
  Receipt Date: 20120103
  Transmission Date: 20120608
  Serious: Yes (Other)
  Sender: FDA-Public Use
  Company Number: DSA_48832_2012

PATIENT
  Age: 53 Year
  Sex: Female

DRUGS (2)
  1. ELIDEL [Suspect]
     Indication: PRURITUS
     Dosage: (30 MG APPLIED DURING THE MORNING TOPICAL), (30 MG, APPLIED AT NIGHT TOPICAL)
     Route: 061
     Dates: start: 20120102
  2. ELIDEL [Suspect]
     Indication: PRURITUS
     Dosage: (30 MG APPLIED DURING THE MORNING TOPICAL), (30 MG, APPLIED AT NIGHT TOPICAL)
     Route: 061
     Dates: start: 20111204

REACTIONS (1)
  - SUFFOCATION FEELING [None]
